FAERS Safety Report 21246974 (Version 2)
Quarter: 2022Q3

REPORT INFORMATION
  Report Type: Spontaneous
  Country: JP (occurrence: JP)
  Receive Date: 20220824
  Receipt Date: 20220826
  Transmission Date: 20221027
  Serious: Yes (Life-Threatening, Hospitalization, Other)
  Sender: FDA-Public Use
  Company Number: None

PATIENT
  Age: 61 Year
  Sex: Male

DRUGS (11)
  1. PREDNISOLONE [Suspect]
     Active Substance: PREDNISOLONE
     Indication: Autoimmune hepatitis
     Dosage: 30 MILLIGRAM,RECEIVED ON ADMISSION DAY 16 AND 17
     Route: 065
  2. ACYCLOVIR [Suspect]
     Active Substance: ACYCLOVIR
     Indication: Product used for unknown indication
     Dosage: UNK
     Route: 048
  3. BETAMETHASONE BUTYRATE PROPIONATE [Suspect]
     Active Substance: BETAMETHASONE BUTYRATE PROPIONATE
     Indication: Sudden hearing loss
     Dosage: 4 MILLIGRAM
     Route: 065
  4. BETAMETHASONE BUTYRATE PROPIONATE [Suspect]
     Active Substance: BETAMETHASONE BUTYRATE PROPIONATE
     Dosage: 2 MILLIGRAM,INITIALLY DOSE WAS REDUCED AND THEN STOPPED
     Route: 065
  5. COTRIMOXAZOLE [Concomitant]
     Active Substance: SULFAMETHOXAZOLE\TRIMETHOPRIM
     Indication: Product used for unknown indication
     Dosage: UNK
     Route: 048
  6. METHYLCOBALAMIN [Concomitant]
     Active Substance: METHYLCOBALAMIN
     Indication: Sudden hearing loss
     Dosage: 500 MICROGRAM
     Route: 065
  7. TEPRENONE [Concomitant]
     Active Substance: TEPRENONE
     Indication: Sudden hearing loss
     Dosage: 50 MILLIGRAM
     Route: 065
  8. ADENOSINE TRIPHOSPHATE DISODIUM TRIHYDRATE [Concomitant]
     Active Substance: ADENOSINE TRIPHOSPHATE DISODIUM TRIHYDRATE
     Indication: Sudden hearing loss
     Dosage: UNK
     Route: 065
  9. BENDAMUSTINE [Concomitant]
     Active Substance: BENDAMUSTINE
     Indication: Follicular lymphoma
     Dosage: UNK,RECEIVED 6 COURSES OF BENDAMUSTINE AND RITUXIMAB
     Route: 065
  10. RITUXIMAB [Concomitant]
     Active Substance: RITUXIMAB
     Indication: Follicular lymphoma
     Dosage: UNK,RECEIVED 6 COURSES OF BENDAMUSTINE AND RITUXIMAB
     Route: 065
  11. RITUXIMAB [Concomitant]
     Active Substance: RITUXIMAB
     Dosage: UNK, (ADMINISTERED 3 MONTHS PRIOR)
     Route: 065

REACTIONS (2)
  - Acute hepatic failure [Recovered/Resolved]
  - Loss of consciousness [Recovered/Resolved]
